FAERS Safety Report 6344566-3 (Version None)
Quarter: 2009Q3

REPORT INFORMATION
  Report Type: 
  Country: None (occurrence: None)
  Receive Date: 20090903
  Receipt Date: 20090826
  Transmission Date: 20100115
  Serious: Yes (Other)
  Sender: FDA-Public Use
  Company Number: 2009SP022411

PATIENT
  Age: 47 Year
  Sex: Male

DRUGS (1)
  1. PEG-INTRON [Suspect]
     Indication: DRUG USE FOR UNKNOWN INDICATION

REACTIONS (14)
  - CONTUSION [None]
  - DECREASED APPETITE [None]
  - DIARRHOEA [None]
  - FATIGUE [None]
  - HEART RATE INCREASED [None]
  - IMMUNE SYSTEM DISORDER [None]
  - INFLUENZA LIKE ILLNESS [None]
  - NAUSEA [None]
  - PROCEDURAL PAIN [None]
  - RHEUMATOID ARTHRITIS [None]
  - SKIN REACTION [None]
  - THROMBOSIS [None]
  - VISUAL IMPAIRMENT [None]
  - WEIGHT DECREASED [None]
